FAERS Safety Report 6699165-0 (Version None)
Quarter: 2010Q2

REPORT INFORMATION
  Report Type: 
  Country: None (occurrence: None)
  Receive Date: 20100421
  Receipt Date: 20090327
  Transmission Date: 20101027
  Serious: Yes (Other)
  Sender: FDA-Public Use
  Company Number: APP200900166

PATIENT
  Age: 68 Year
  Sex: Male
  Weight: 65 kg

DRUGS (5)
  1. HEPARIN SODIUM INJECTION [Suspect]
     Indication: CORONARY ARTERY BYPASS
     Dosage: 20000 USP UNITS, ONCE, I.C. ; 10000 USP UNITS, ONCE, INTRAVENOUS
     Route: 042
     Dates: start: 20090325, end: 20090325
  2. HEPARIN SODIUM INJECTION [Suspect]
     Indication: CORONARY ARTERY BYPASS
     Dosage: 20000 USP UNITS, ONCE, I.C. ; 10000 USP UNITS, ONCE, INTRAVENOUS
     Route: 042
     Dates: start: 20090325, end: 20090325
  3. INSULIN (INSULIN) [Concomitant]
  4. LIPITOR [Concomitant]
  5. ASPIRIN [Concomitant]

REACTIONS (1)
  - DRUG INEFFECTIVE [None]
